FAERS Safety Report 17347988 (Version 1)
Quarter: 2020Q1

REPORT INFORMATION
  Report Type: Report from Study
  Country: US (occurrence: US)
  Receive Date: 20200129
  Receipt Date: 20200129
  Transmission Date: 20200409
  Serious: No
  Sender: FDA-Public Use
  Company Number: US-EXELIXIS-CABO-19025626

PATIENT
  Age: 71 Year
  Sex: Male

DRUGS (1)
  1. CABOMETYX [Suspect]
     Active Substance: CABOZANTINIB S-MALATE
     Indication: RENAL CELL CARCINOMA
     Dosage: 40 MG
     Dates: start: 20191029, end: 20191121

REACTIONS (5)
  - Weight decreased [Unknown]
  - Rash [Unknown]
  - Diarrhoea [Recovering/Resolving]
  - Night sweats [Unknown]
  - Decreased appetite [Unknown]

NARRATIVE: CASE EVENT DATE: 201911
